FAERS Safety Report 7748750-3 (Version None)
Quarter: 2011Q3

REPORT INFORMATION
  Report Type: 
  Country: None (occurrence: None)
  Receive Date: 20110914
  Receipt Date: 20110910
  Transmission Date: 20111222
  Serious: No
  Sender: FDA-Public Use
  Company Number: US-BIOGENIDEC-2011BI034719

PATIENT
  Age: 58 Year
  Sex: Female

DRUGS (1)
  1. AVONEX [Suspect]
     Indication: MULTIPLE SCLEROSIS
     Route: 030
     Dates: start: 20110528

REACTIONS (5)
  - HEADACHE [None]
  - EYE SWELLING [None]
  - BLOOD PRESSURE INCREASED [None]
  - HEMIPARESIS [None]
  - EYELID PTOSIS [None]
